FAERS Safety Report 6209815-0 (Version None)
Quarter: 2009Q2

REPORT INFORMATION
  Report Type: 
  Country: None (occurrence: None)
  Receive Date: 20090601
  Receipt Date: 20090526
  Transmission Date: 20091009
  Serious: Yes (Death)
  Sender: FDA-Public Use
  Company Number: PHHY2009CA16642

PATIENT
  Sex: Male
  Weight: 76.8 kg

DRUGS (3)
  1. EXJADE [Suspect]
     Indication: MYELODYSPLASTIC SYNDROME
     Dosage: 1500 MG/DAY
     Route: 048
     Dates: start: 20081009, end: 20090404
  2. EXJADE [Suspect]
     Indication: IRON OVERLOAD
  3. DECITABINE [Concomitant]

REACTIONS (1)
  - DEATH [None]
